FAERS Safety Report 6048966-0 (Version None)
Quarter: 2009Q1

REPORT INFORMATION
  Report Type: 
  Country: None (occurrence: None)
  Receive Date: 20090123
  Receipt Date: 20090120
  Transmission Date: 20090719
  Serious: Yes (Hospitalization)
  Sender: FDA-Public Use
  Company Number: A0764181A

PATIENT
  Age: 78 Year
  Sex: Male

DRUGS (2)
  1. AVANDIA [Suspect]
     Dosage: 1TAB TWICE PER DAY
     Route: 048
     Dates: start: 19990601, end: 20051212
  2. NO CONCURRENT MEDICATION [Concomitant]

REACTIONS (5)
  - BLOOD GLUCOSE ABNORMAL [None]
  - CARDIAC DISORDER [None]
  - CIRCULATORY COLLAPSE [None]
  - LOSS OF CONSCIOUSNESS [None]
  - RENAL DISORDER [None]
